FAERS Safety Report 4475248-0 (Version None)
Quarter: 2004Q4

REPORT INFORMATION
  Report Type: 
  Country: None (occurrence: None)
  Receive Date: 20041015
  Receipt Date: 20041001
  Transmission Date: 20050328
  Serious: Yes (Death)
  Sender: FDA-Public Use
  Company Number: DE-JNJFOC-20040702023

PATIENT
  Sex: Male
  Weight: 71 kg

DRUGS (1)
  1. EPIPEVISONE [Suspect]
     Route: 003
     Dates: start: 20040623, end: 20040705

REACTIONS (6)
  - DECREASED APPETITE [None]
  - FAECAL INCONTINENCE [None]
  - FATIGUE [None]
  - OEDEMA PERIPHERAL [None]
  - PALPITATIONS [None]
  - WEIGHT DECREASED [None]
